FAERS Safety Report 7145994-9 (Version None)
Quarter: 2010Q4

REPORT INFORMATION
  Report Type: 
  Country: None (occurrence: None)
  Receive Date: 20101208
  Receipt Date: 20101130
  Transmission Date: 20110411
  Serious: Yes (Other)
  Sender: FDA-Public Use
  Company Number: US-SANOFI-AVENTIS-2010SA073036

PATIENT
  Age: 71 Year
  Sex: Male

DRUGS (3)
  1. LANTUS [Suspect]
     Indication: TYPE 2 DIABETES MELLITUS
     Dosage: DOSE:50 UNIT(S)
     Route: 058
  2. LANTUS [Suspect]
     Route: 058
     Dates: start: 20020101
  3. OPTICLICK [Suspect]
     Dates: start: 20020101

REACTIONS (3)
  - CATARACT [None]
  - GLAUCOMA [None]
  - VISUAL IMPAIRMENT [None]
